FAERS Safety Report 4784397-9 (Version None)
Quarter: 2005Q3

REPORT INFORMATION
  Report Type: 
  Country: None (occurrence: None)
  Receive Date: 20050928
  Receipt Date: 20050916
  Transmission Date: 20060218
  Serious: Yes (Other)
  Sender: FDA-Public Use
  Company Number: 2005129757

PATIENT
  Age: 52 Year
  Sex: Female
  Weight: 63.5036 kg

DRUGS (5)
  1. LYRICA [Suspect]
     Indication: CYSTITIS INTERSTITIAL
     Dosage: 100 MG (100 MG, 1 IN 1 D), ORAL
     Route: 048
     Dates: start: 20050912
  2. ELAVIL [Suspect]
     Indication: PAIN
  3. CLONAZEPAM [Suspect]
     Indication: PAIN
  4. OXYCONTIN [Suspect]
     Indication: PAIN
  5. SEROQUEL [Suspect]
     Indication: PAIN

REACTIONS (9)
  - FEELING ABNORMAL [None]
  - GAIT DISTURBANCE [None]
  - HEADACHE [None]
  - IMPAIRED DRIVING ABILITY [None]
  - INJURY CORNEAL [None]
  - LOSS OF CONSCIOUSNESS [None]
  - OVERDOSE [None]
  - SOMNOLENCE [None]
  - SPEECH DISORDER [None]
